FAERS Safety Report 6788892-2 (Version None)
Quarter: 2010Q2

REPORT INFORMATION
  Report Type: 
  Country: None (occurrence: None)
  Receive Date: 20100623
  Receipt Date: 20100614
  Transmission Date: 20101027
  Serious: Yes (Hospitalization)
  Sender: FDA-Public Use
  Company Number: NL-AMGEN-QUU418997

PATIENT
  Age: 3 Year
  Sex: Female
  Weight: 9 kg

DRUGS (7)
  1. ENBREL [Suspect]
     Indication: JUVENILE ARTHRITIS
     Dosage: 0.4 MG PER KG (MAX 25 MG PER DOSE) WITH 3 TO 4 DAYS BETWEEN EVERY DOSE
     Route: 058
     Dates: start: 20091201, end: 20100401
  2. ENBREL [Suspect]
     Dosage: 0.4 MG PER KG (MAX 25 MG PER DOSE) WITH 3 TO 4 DAYS BETWEEN EVERY DOSE
     Route: 058
     Dates: start: 20100401, end: 20100601
  3. ENBREL [Suspect]
     Dosage: 0.4 MG PER KG (MAX 25 MG PER DOSE) WITH 3 TO 4 DAYS BETWEEN EVERY DOSE
     Dates: start: 20100601
  4. METHOTREXATE [Suspect]
     Indication: JUVENILE ARTHRITIS
     Dosage: 7.5 UNITS PER WEEK VIA INJECTIONS
     Dates: start: 20090601
  5. BACTRIMEL [Concomitant]
     Indication: PROPHYLAXIS
     Dosage: 2 ML TWICE A DAY, EVERY DAY, EXEPT WHEN MTX IS GIVEN
     Route: 048
     Dates: start: 20090601
  6. IBUPROFEN TABLETS [Concomitant]
     Indication: JUVENILE ARTHRITIS
     Route: 048
     Dates: start: 20090501
  7. FOLIC ACID [Concomitant]
     Indication: PROPHYLAXIS
     Route: 048
     Dates: start: 20090601

REACTIONS (2)
  - ARTHRITIS [None]
  - PNEUMONIA [None]
